FAERS Safety Report 13286246 (Version 14)
Quarter: 2018Q2

REPORT INFORMATION
  Report Type: Spontaneous
  Country: US (occurrence: US)
  Receive Date: 20170301
  Receipt Date: 20180426
  Transmission Date: 20180711
  Serious: Yes (Hospitalization)
  Sender: FDA-Public Use
  Company Number: US-ACTELION-A-US2017-150410

PATIENT
  Age: 68 Year
  Sex: Male
  Weight: 86.62 kg

DRUGS (8)
  1. UPTRAVI [Suspect]
     Active Substance: SELEXIPAG
     Dosage: 200 MCG, BID
     Route: 048
  2. ADEMPAS [Concomitant]
     Active Substance: RIOCIGUAT
     Dosage: 1 MG, TID
     Dates: end: 2016
  3. LETAIRIS [Concomitant]
     Active Substance: AMBRISENTAN
     Dosage: UNK
  4. ADEMPAS [Concomitant]
     Active Substance: RIOCIGUAT
     Dosage: 0.5 MG, TID
     Dates: start: 201801
  5. UPTRAVI [Suspect]
     Active Substance: SELEXIPAG
     Indication: PULMONARY ARTERIAL HYPERTENSION
     Dosage: 600 MCG, BID
     Route: 048
  6. UPTRAVI [Suspect]
     Active Substance: SELEXIPAG
     Dosage: 400 MCG, BID
     Route: 048
  7. UPTRAVI [Suspect]
     Active Substance: SELEXIPAG
     Dosage: 800 MCG, BID
     Route: 048
  8. ADEMPAS [Concomitant]
     Active Substance: RIOCIGUAT
     Dosage: 0.5 MG, TID

REACTIONS (22)
  - Glycosylated haemoglobin increased [Unknown]
  - Contusion [Unknown]
  - Bone pain [Not Recovered/Not Resolved]
  - Flushing [Unknown]
  - Impaired quality of life [Unknown]
  - Limb discomfort [Not Recovered/Not Resolved]
  - Pain [Unknown]
  - Renal disorder [Unknown]
  - Dyspnoea [Unknown]
  - Depression [Unknown]
  - Fatigue [Unknown]
  - Therapy non-responder [Unknown]
  - Rash [Not Recovered/Not Resolved]
  - Hot flush [Not Recovered/Not Resolved]
  - Pain in jaw [Unknown]
  - Restless legs syndrome [Not Recovered/Not Resolved]
  - Impaired driving ability [Unknown]
  - Pain in extremity [Unknown]
  - Muscle spasms [Unknown]
  - Hypotension [Unknown]
  - Myalgia [Not Recovered/Not Resolved]
  - Arthralgia [Not Recovered/Not Resolved]
